FAERS Safety Report 5354413-4 (Version None)
Quarter: 2007Q2

REPORT INFORMATION
  Report Type: 
  Country: None (occurrence: None)
  Receive Date: 20070521
  Receipt Date: 20070409
  Transmission Date: 20071010
  Serious: No
  Sender: FDA-Public Use
  Company Number: WAES 0704USA01493

PATIENT
  Age: 58 Year
  Sex: Female

DRUGS (5)
  1. JANUVIA [Suspect]
     Indication: DIABETES MELLITUS NON-INSULIN-DEPENDENT
     Dosage: 100 MG/DAILY/PO
     Route: 048
     Dates: start: 20070409
  2. ASPIRIN [Concomitant]
  3. ATENOLOL [Concomitant]
  4. DILTIAZEM HYDROCHLORIDE [Concomitant]
  5. METFORMIN HYDROCHLORIDE [Concomitant]

REACTIONS (2)
  - HYPOAESTHESIA [None]
  - HYPOAESTHESIA FACIAL [None]
